FAERS Safety Report 15926088 (Version 3)
Quarter: 2022Q3

REPORT INFORMATION
  Report Type: Spontaneous
  Country: US (occurrence: None)
  Receive Date: 20190206
  Receipt Date: 20220906
  Transmission Date: 20221027
  Serious: Yes (Death, Other)
  Sender: FDA-Public Use
  Company Number: 2018SF65467

PATIENT
  Sex: Female
  Weight: 56.7 kg

DRUGS (21)
  1. NEXIUM [Suspect]
     Active Substance: ESOMEPRAZOLE MAGNESIUM
     Indication: Gastrooesophageal reflux disease
     Route: 048
     Dates: start: 200905, end: 20100422
  2. METOPROLOL [Concomitant]
     Active Substance: METOPROLOL
     Indication: Anxiety
     Dates: start: 20090527
  3. BUSPIRONE [Concomitant]
     Active Substance: BUSPIRONE HYDROCHLORIDE
     Indication: Anxiety
     Dates: start: 2009, end: 2010
  4. CITALOPRAM [Concomitant]
     Active Substance: CITALOPRAM HYDROBROMIDE
     Indication: Antidepressant therapy
     Dates: start: 2007, end: 2010
  5. PROVENTIL HFA [Concomitant]
     Active Substance: ALBUTEROL SULFATE
     Indication: Nasal congestion
     Dates: start: 2009, end: 2010
  6. FLUTICASONE [Concomitant]
     Active Substance: FLUTICASONE
     Indication: Nasal congestion
     Dates: start: 2009, end: 2010
  7. LUTEIN [Concomitant]
     Active Substance: LUTEIN
     Indication: Visual impairment
  8. VITAMINS [Concomitant]
     Active Substance: VITAMINS
     Indication: General physical health deterioration
  9. TUMS [Concomitant]
     Active Substance: CALCIUM CARBONATE
  10. ROLAIDS [Concomitant]
     Active Substance: CALCIUM CARBONATE\MAGNESIUM HYDROXIDE
  11. KETOCONAZOLE [Concomitant]
     Active Substance: KETOCONAZOLE
  12. NASONEX [Concomitant]
     Active Substance: MOMETASONE FUROATE
  13. MECLIZINE [Concomitant]
     Active Substance: MECLIZINE HYDROCHLORIDE
  14. FEXOFENADINE [Concomitant]
     Active Substance: FEXOFENADINE HYDROCHLORIDE
  15. CIPROFLOXACIN [Concomitant]
     Active Substance: CIPROFLOXACIN
  16. ASPIRIN [Concomitant]
     Active Substance: ASPIRIN
  17. FISH OIL [Concomitant]
     Active Substance: FISH OIL
  18. VITAMIN D [Concomitant]
     Active Substance: VITAMIN D NOS
  19. ANTIVERT [Concomitant]
     Active Substance: MECLIZINE HYDROCHLORIDE
  20. VANCOMYCIN [Concomitant]
     Active Substance: VANCOMYCIN
  21. MAGNESSIUM PHOSPHATE [Concomitant]

REACTIONS (6)
  - Cardiac failure congestive [Fatal]
  - Acute kidney injury [Unknown]
  - Chronic kidney disease [Unknown]
  - Renal failure [Unknown]
  - Renal injury [Unknown]
  - Rebound acid hypersecretion [Unknown]
